FAERS Safety Report 5863988-8 (Version None)
Quarter: 2008Q3

REPORT INFORMATION
  Report Type: 
  Country: None (occurrence: None)
  Receive Date: 20080829
  Receipt Date: 20080822
  Transmission Date: 20090109
  Serious: Yes (Hospitalization)
  Sender: FDA-Public Use
  Company Number: NL-BAYER-200824963GPV

PATIENT
  Age: 57 Year
  Sex: Female

DRUGS (3)
  1. NEXAVAR [Suspect]
     Indication: NON-SMALL CELL LUNG CANCER STAGE IV
     Dosage: TOTAL DAILY DOSE: 800 MG
     Route: 048
     Dates: start: 20080709, end: 20080821
  2. TARCEVA [Suspect]
     Indication: NON-SMALL CELL LUNG CANCER STAGE IV
     Dosage: TOTAL DAILY DOSE: 150 MG
     Route: 048
     Dates: start: 20080709, end: 20080821
  3. ACETAMINOPHEN [Concomitant]
     Indication: DRUG USE FOR UNKNOWN INDICATION
     Route: 065
     Dates: start: 20080816

REACTIONS (2)
  - EMPYEMA [None]
  - TUMOUR NECROSIS [None]
